FAERS Safety Report 9762063 (Version 1)
Quarter: 2013Q4

REPORT INFORMATION
  Report Type: Spontaneous
  Country: US (occurrence: US)
  Receive Date: 20131216
  Receipt Date: 20131216
  Transmission Date: 20140711
  Serious: No
  Sender: FDA-Public Use
  Company Number: US-BIOGENIDEC-2013BI106674

PATIENT
  Age: 70 Year
  Sex: Male

DRUGS (16)
  1. TECFIDERA [Suspect]
     Indication: MULTIPLE SCLEROSIS
     Route: 048
     Dates: start: 20130903
  2. AMITRIPTYLINE HCL [Concomitant]
  3. ASPIRIN [Concomitant]
  4. BACLOFEN [Concomitant]
  5. CALCIUM CITRATE [Concomitant]
  6. CIALIS [Concomitant]
  7. GABAPENTIN [Concomitant]
  8. LASIX [Concomitant]
  9. LISINOPRIL [Concomitant]
  10. METFORMIN HCL [Concomitant]
  11. PANTOPRAZOLE SODIUM [Concomitant]
  12. QUINAPRIL HYDROCHLORTHIAZIDE [Concomitant]
  13. QUINIDINE SULFATE [Concomitant]
  14. TAMAZEPAM [Concomitant]
  15. VESICARE [Concomitant]
  16. VITAMIN D [Concomitant]

REACTIONS (1)
  - Herpes zoster [Unknown]
